FAERS Safety Report 25378138 (Version 1)
Quarter: 2025Q2

REPORT INFORMATION
  Report Type: Spontaneous
  Country: US (occurrence: US)
  Receive Date: 20250530
  Receipt Date: 20250530
  Transmission Date: 20250716
  Serious: Yes (Other)
  Sender: Unknown Manufacturer
  Company Number: US-KOANAAP-SML-US-2025-00271

PATIENT
  Age: 57 Year
  Sex: Male

DRUGS (13)
  1. CAPECITABINE [Suspect]
     Active Substance: CAPECITABINE
     Indication: Pancreatic neuroendocrine tumour
     Dates: start: 2018
  2. GEMCITABINE [Suspect]
     Active Substance: GEMCITABINE
     Indication: Pancreatic neuroendocrine tumour
     Route: 065
     Dates: start: 2021
  3. TEMOZOLOMIDE [Suspect]
     Active Substance: TEMOZOLOMIDE
     Indication: Pancreatic neuroendocrine tumour
     Dates: start: 2018
  4. LAROTRECTINIB [Suspect]
     Active Substance: LAROTRECTINIB
     Indication: Pancreatic neuroendocrine tumour
     Dates: start: 2019
  5. SELITRECTINIB [Suspect]
     Active Substance: SELITRECTINIB
     Indication: Pancreatic neuroendocrine tumour
     Dates: start: 2020
  6. OXALIPLATIN [Suspect]
     Active Substance: OXALIPLATIN
     Indication: Pancreatic neuroendocrine tumour
     Dates: start: 2021
  7. FLUOROURACIL [Suspect]
     Active Substance: FLUOROURACIL
     Indication: Pancreatic neuroendocrine tumour
     Dates: start: 2021
  8. LEUCOVORIN [Suspect]
     Active Substance: LEUCOVORIN\LEUCOVORIN CALCIUM
     Indication: Pancreatic neuroendocrine tumour
     Dates: start: 2021
  9. CARBOPLATIN [Suspect]
     Active Substance: CARBOPLATIN
     Indication: Pancreatic neuroendocrine tumour
     Dates: start: 2021
  10. ETOPOSIDE [Suspect]
     Active Substance: ETOPOSIDE
     Indication: Pancreatic neuroendocrine tumour
     Dates: start: 2021
  11. IPILIMUMAB [Suspect]
     Active Substance: IPILIMUMAB
     Indication: Pancreatic neuroendocrine tumour
     Dates: start: 2022
  12. NIVOLUMAB [Suspect]
     Active Substance: NIVOLUMAB
     Indication: Pancreatic neuroendocrine tumour
     Dates: start: 2022
  13. LAROTRECTINIB [Suspect]
     Active Substance: LAROTRECTINIB
     Indication: Pancreatic neuroendocrine tumour
     Dates: start: 2021

REACTIONS (7)
  - Therapy partial responder [Unknown]
  - Temperature intolerance [Unknown]
  - Pulmonary embolism [Unknown]
  - Neuropathy peripheral [Unknown]
  - Fatigue [Unknown]
  - Nausea [Unknown]
  - Rash [Unknown]
